FAERS Safety Report 11123677 (Version 8)
Quarter: 2018Q2

REPORT INFORMATION
  Report Type: Report from Study
  Country: ES (occurrence: ES)
  Receive Date: 20150519
  Receipt Date: 20180402
  Transmission Date: 20180711
  Serious: Yes (Hospitalization, Other)
  Sender: FDA-Public Use
  Company Number: PHHY2015ES056752

PATIENT
  Age: 8 Year
  Sex: Male
  Weight: 30 kg

DRUGS (5)
  1. VOTUBIA [Suspect]
     Active Substance: EVEROLIMUS
     Indication: TUBEROUS SCLEROSIS COMPLEX
     Dosage: 5 MG, QD
     Route: 048
     Dates: start: 20140806, end: 20150205
  2. LACOSAMIDA [Concomitant]
     Indication: EPILEPSY
     Dosage: 100 MG, Q12H
     Route: 065
  3. VIGABATRINA [Concomitant]
     Indication: EPILEPSY
     Dosage: 500 MG, Q12H (500 MG-750 MG)
     Route: 065
  4. VOTUBIA [Suspect]
     Active Substance: EVEROLIMUS
     Dosage: 5 MG, QD
     Route: 048
     Dates: start: 20150207
  5. VOTUBIA [Suspect]
     Active Substance: EVEROLIMUS
     Dosage: 3.75 MG, QD
     Route: 048

REACTIONS (9)
  - Gingival abscess [Recovered/Resolved]
  - Constipation [Recovered/Resolved]
  - Cough [Recovered/Resolved]
  - Dental caries [Recovered/Resolved]
  - Gingival abscess [Recovered/Resolved]
  - Aphthous ulcer [Recovered/Resolved]
  - Swelling face [Recovered/Resolved]
  - Stomatitis [Recovered/Resolved]
  - Gingivitis [Not Recovered/Not Resolved]

NARRATIVE: CASE EVENT DATE: 20141105
